FAERS Safety Report 7189349-X (Version None)
Quarter: 2010Q4

REPORT INFORMATION
  Report Type: 
  Country: None (occurrence: None)
  Receive Date: 20101222
  Receipt Date: 20100824
  Transmission Date: 20110411
  Serious: No
  Sender: FDA-Public Use
  Company Number: US-AMGEN-KDL428707

PATIENT

DRUGS (6)
  1. ENBREL [Suspect]
     Indication: PSORIATIC ARTHROPATHY
     Dosage: 50 MG, QWK
     Route: 058
     Dates: start: 20100614
  2. PREGABALIN [Concomitant]
  3. TRAZODONE HCL [Concomitant]
  4. MONTELUKAST [Concomitant]
  5. ESCITALOPRAM OXALATE [Concomitant]
  6. TRAMADOL [Concomitant]

REACTIONS (11)
  - ALOPECIA [None]
  - EYE SWELLING [None]
  - INJECTION SITE ERYTHEMA [None]
  - INJECTION SITE HAEMATOMA [None]
  - INJECTION SITE PAIN [None]
  - INJECTION SITE PRURITUS [None]
  - INJECTION SITE REACTION [None]
  - INJECTION SITE ULCER [None]
  - NAUSEA [None]
  - PAIN [None]
  - PSORIATIC ARTHROPATHY [None]
